FAERS Safety Report 15204731 (Version 2)
Quarter: 2018Q3

REPORT INFORMATION
  Report Type: Spontaneous
  Country: IT (occurrence: IT)
  Receive Date: 20180726
  Receipt Date: 20180827
  Transmission Date: 20181010
  Serious: Yes (Other)
  Sender: FDA-Public Use
  Company Number: PHHY2017IT176216

PATIENT
  Age: 37 Year
  Sex: Male

DRUGS (5)
  1. FLUMAZENIL. [Suspect]
     Active Substance: FLUMAZENIL
     Indication: DETOXIFICATION
  2. VALPROATE SODIUM. [Suspect]
     Active Substance: VALPROATE SODIUM
     Indication: CONVULSION PROPHYLAXIS
     Dosage: 1000 MG, QD
     Route: 065
  3. FLUMAZENIL. [Suspect]
     Active Substance: FLUMAZENIL
     Dosage: LOW?DOSE SLOW SUBCUTANEOUS INFUSION, 40.5 ?G/HOUR FOR 24 HOURS/DAY
     Route: 058
  4. DIAZEPAM. [Concomitant]
     Active Substance: DIAZEPAM
     Indication: SEIZURE
     Dosage: 600 MG, UNK
     Route: 065
  5. VALPROATE SODIUM. [Suspect]
     Active Substance: VALPROATE SODIUM
     Indication: PROPHYLAXIS

REACTIONS (2)
  - Epilepsy [Recovered/Resolved]
  - Generalised tonic-clonic seizure [Recovered/Resolved]
